FAERS Safety Report 22124794 (Version 2)
Quarter: 2023Q2

REPORT INFORMATION
  Report Type: Report from Study
  Country: US (occurrence: None)
  Receive Date: 20230322
  Receipt Date: 20230421
  Transmission Date: 20230721
  Serious: Yes (Death)
  Sender: FDA-Public Use
  Company Number: US-ROCHE-3314703

PATIENT
  Age: 76 Year
  Sex: Male
  Weight: 73.8 kg

DRUGS (7)
  1. POLATUZUMAB VEDOTIN [Suspect]
     Active Substance: POLATUZUMAB VEDOTIN
     Indication: Diffuse large B-cell lymphoma
     Dosage: 08/OCT/2021 DATE OF PATIENT COMPLETING CYCLE 2 DAY15. DATE OF  PATIENT COMPLETED TX/LAST DOSE OF GNE
     Route: 042
     Dates: start: 20210903
  2. POLATUZUMAB VEDOTIN [Suspect]
     Active Substance: POLATUZUMAB VEDOTIN
     Dosage: DATE OF LAST DOSE 16/OCT/2021 (140 MG)
     Route: 042
     Dates: start: 20210903, end: 20211016
  3. RITUXIMAB [Suspect]
     Active Substance: RITUXIMAB
     Indication: Diffuse large B-cell lymphoma
     Dosage: 08/OCT/2021 DATE OF PATIENT COMPLETING CYCLE 2 DAY15. DATE OF PATIENT COMPLETED TX/LAST DOSE OF GNE
     Route: 041
     Dates: start: 20210903
  4. RITUXIMAB [Suspect]
     Active Substance: RITUXIMAB
     Dosage: RECEIVED DOSE ON 16/OCT/2021 700 MG
     Route: 042
     Dates: start: 20210903, end: 20211016
  5. ETOPOSIDE [Suspect]
     Active Substance: ETOPOSIDE
     Indication: Diffuse large B-cell lymphoma
     Route: 042
     Dates: start: 20210903, end: 20211016
  6. CARBOPLATIN [Suspect]
     Active Substance: CARBOPLATIN
     Indication: Diffuse large B-cell lymphoma
     Dosage: DOSE 5 MG/AUC RECEIVED DOSE ON 16/OCT/2021
     Route: 042
     Dates: start: 20210903, end: 20211016
  7. IFOSFAMIDE [Suspect]
     Active Substance: IFOSFAMIDE
     Indication: Diffuse large B-cell lymphoma
     Dosage: RECEIVED DOSE ON 16/OCT/2021
     Route: 042
     Dates: start: 20210903, end: 20211016

REACTIONS (3)
  - COVID-19 [Fatal]
  - Pneumonia [Fatal]
  - Respiratory failure [Fatal]

NARRATIVE: CASE EVENT DATE: 20220119
